FAERS Safety Report 12735738 (Version 1)
Quarter: 2016Q3

REPORT INFORMATION
  Report Type: Spontaneous
  Country: GB (occurrence: GB)
  Receive Date: 20160912
  Receipt Date: 20160912
  Transmission Date: 20161109
  Serious: Yes (Other)
  Sender: FDA-Public Use
  Company Number: GB-GLAXOSMITHKLINE-GB2016128948

PATIENT
  Age: 69 Year
  Sex: Female
  Weight: 88.9 kg

DRUGS (3)
  1. CETIRIZINE [Concomitant]
     Active Substance: CETIRIZINE HYDROCHLORIDE
     Indication: HYPERSENSITIVITY
     Dosage: UNK
     Route: 065
  2. DETRUSITOL [Concomitant]
     Active Substance: TOLTERODINE TARTRATE
     Dosage: 2 MG, UNK
  3. FLIXONASE [Suspect]
     Active Substance: FLUTICASONE PROPIONATE
     Indication: LICHEN PLANUS
     Dosage: 2 DF, BID
     Route: 045
     Dates: start: 20160817, end: 20160825

REACTIONS (3)
  - Feeling hot [Recovering/Resolving]
  - Pruritus [Recovering/Resolving]
  - Dry mouth [Recovering/Resolving]

NARRATIVE: CASE EVENT DATE: 20160821
